FAERS Safety Report 8556865-5 (Version None)
Quarter: 2012Q2

REPORT INFORMATION
  Report Type: 
  Country: None (occurrence: None)
  Receive Date: 20120418
  Receipt Date: 20090916
  Transmission Date: 20120825
  Serious: Yes (Other)
  Sender: FDA-Public Use
  Company Number: PHEH2009US11067

PATIENT
  Sex: Female

DRUGS (5)
  1. PREMARIN [Suspect]
     Indication: HORMONE THERAPY
     Dosage: 0.625 MG
     Dates: start: 19821213, end: 19920401
  2. ESTRADERM TTS (ESTRADIOL) TRANS-THERAPEUTIC-SYSTEM [Suspect]
     Indication: HORMONE THERAPY
     Dosage: TRANSDERMAL
     Route: 062
     Dates: start: 19920422, end: 19971111
  3. PROVERA [Suspect]
     Indication: HORMONE REPLACEMENT THERAPY
     Dosage: 10 MG ; 2.5 MG
     Dates: start: 19920422, end: 19951001
  4. PROVERA [Suspect]
     Indication: HORMONE REPLACEMENT THERAPY
     Dosage: 10 MG ; 2.5 MG
     Dates: start: 19951030, end: 19971111
  5. PREMPRO [Suspect]
     Indication: HORMONE THERAPY
     Dates: start: 19971111, end: 20020601

REACTIONS (10)
  - ANXIETY [None]
  - LYMPHADENECTOMY [None]
  - PROGESTERONE RECEPTOR ASSAY POSITIVE [None]
  - BREAST CANCER IN SITU [None]
  - DEFORMITY [None]
  - PSYCHIATRIC SYMPTOM [None]
  - QUALITY OF LIFE DECREASED [None]
  - MASTECTOMY [None]
  - OESTROGEN RECEPTOR ASSAY POSITIVE [None]
  - PAIN [None]
